FAERS Safety Report 17422496 (Version 1)
Quarter: 2020Q1

REPORT INFORMATION
  Report Type: Spontaneous
  Country: CA (occurrence: CA)
  Receive Date: 20200215
  Receipt Date: 20200215
  Transmission Date: 20200409
  Serious: Yes (Death, Hospitalization, Other)
  Sender: FDA-Public Use
  Company Number: CA-CELLTRION INC.-2020CA019394

PATIENT

DRUGS (1)
  1. INFLECTRA [Suspect]
     Active Substance: INFLIXIMAB-DYYB
     Indication: CROHN^S DISEASE
     Dosage: 10 MG/KG, WEEK 0 (HOSPITAL START)
     Route: 042
     Dates: start: 20200203

REACTIONS (4)
  - Liver disorder [Unknown]
  - Gastrointestinal necrosis [Unknown]
  - Death [Fatal]
  - Multi-organ disorder [Unknown]
